FAERS Safety Report 19812637 (Version 1)
Quarter: 2021Q3

REPORT INFORMATION
  Report Type: Spontaneous
  Country: US (occurrence: US)
  Receive Date: 20210908
  Receipt Date: 20210908
  Transmission Date: 20211014
  Serious: Yes (Hospitalization)
  Sender: FDA-Public Use
  Company Number: None

PATIENT
  Age: 58 Year
  Sex: Female

DRUGS (11)
  1. GABAPENTIN. [Concomitant]
     Active Substance: GABAPENTIN
  2. PREGABALIN. [Concomitant]
     Active Substance: PREGABALIN
  3. PROPRANOLOR ER [Concomitant]
  4. GLATIRAMER 40MG/ML SYR [Suspect]
     Active Substance: GLATIRAMER
     Indication: MULTIPLE SCLEROSIS
     Dosage: ?          OTHER DOSE:1 SYR;OTHER FREQUENCY:TIW?M?W?F;?
     Route: 058
     Dates: start: 20210430
  5. RIVASTIGMINE DIS [Concomitant]
  6. ATORVASTATIN [Concomitant]
     Active Substance: ATORVASTATIN
  7. LANTUS SOLOS [Concomitant]
  8. OZEMPIC [Concomitant]
     Active Substance: SEMAGLUTIDE
  9. VENKAFAXINE ER [Concomitant]
  10. MODAFINIL. [Concomitant]
     Active Substance: MODAFINIL
  11. PRIMIDONE. [Concomitant]
     Active Substance: PRIMIDONE

REACTIONS (1)
  - Gait disturbance [None]

NARRATIVE: CASE EVENT DATE: 20210903
